FAERS Safety Report 5392000-2 (Version None)
Quarter: 2007Q3

REPORT INFORMATION
  Report Type: 
  Country: None (occurrence: None)
  Receive Date: 20070720
  Receipt Date: 20070711
  Transmission Date: 20080115
  Serious: Yes (Other)
  Sender: FDA-Public Use
  Company Number: JP-JNJFOC-20070702391

PATIENT
  Age: 64 Year
  Sex: Female

DRUGS (9)
  1. MICONAZOLE [Suspect]
     Route: 048
  2. MICONAZOLE [Suspect]
     Indication: ORAL CANDIDIASIS
     Route: 048
  3. BETAMETHASONE-D-CHLORPHENIRAMINE MALEATE [Concomitant]
     Route: 065
  4. OLOPATADINE HYDROCHLORIDE [Concomitant]
     Route: 065
  5. DIAZEPAM [Concomitant]
     Route: 065
  6. THEOPHYLLINE [Concomitant]
     Route: 065
  7. AMBROXOL HYDROCHLORIDE [Concomitant]
     Route: 065
  8. TRAMAZOLINE HYDROCHLORIDE [Concomitant]
     Route: 065
  9. FLUOROMETHOLONE [Concomitant]
     Route: 065

REACTIONS (1)
  - HAEMATURIA [None]
